FAERS Safety Report 8076831-6 (Version None)
Quarter: 2012Q1

REPORT INFORMATION
  Report Type: 
  Country: None (occurrence: None)
  Receive Date: 20120127
  Receipt Date: 20120119
  Transmission Date: 20120608
  Serious: Yes (Hospitalization, Other)
  Sender: FDA-Public Use
  Company Number: US-MERCK-1106USA03367

PATIENT
  Age: 60 Year
  Sex: Female

DRUGS (10)
  1. FOSAMAX [Suspect]
     Route: 048
     Dates: start: 20070705, end: 20080101
  2. FOSAMAX [Suspect]
     Route: 048
     Dates: start: 20040901, end: 20050901
  3. FOSAMAX [Suspect]
     Indication: OSTEOPOROSIS
     Route: 048
     Dates: start: 19960801
  4. FOSAMAX [Suspect]
     Route: 048
     Dates: start: 20060628, end: 20070601
  5. FOSAMAX [Suspect]
     Route: 048
     Dates: start: 20040901, end: 20050901
  6. FOSAMAX [Suspect]
     Route: 048
     Dates: start: 20060628, end: 20070601
  7. ALENDRONATE SODIUM [Suspect]
     Indication: OSTEOPENIA
     Route: 048
     Dates: start: 20080201, end: 20090801
  8. FOSAMAX [Suspect]
     Route: 048
     Dates: start: 20070705, end: 20080101
  9. ALENDRONATE SODIUM [Suspect]
     Indication: OSTEOPOROSIS
     Route: 048
     Dates: start: 20080201, end: 20090801
  10. FOSAMAX [Suspect]
     Indication: OSTEOPENIA
     Route: 048
     Dates: start: 19960801

REACTIONS (18)
  - OSTEOPOROSIS [None]
  - ARTHROPATHY [None]
  - RUPTURED ECTOPIC PREGNANCY [None]
  - RIB FRACTURE [None]
  - EXOSTOSIS [None]
  - APPENDIX DISORDER [None]
  - HYPERLIPIDAEMIA [None]
  - FALL [None]
  - HYPERTENSION [None]
  - ANXIETY [None]
  - BENIGN NEOPLASM [None]
  - DEPRESSION [None]
  - ANAEMIA POSTOPERATIVE [None]
  - WEIGHT INCREASED [None]
  - FEMUR FRACTURE [None]
  - UTERINE DISORDER [None]
  - MIGRAINE [None]
  - SPINAL DISORDER [None]
